FAERS Safety Report 7635894-X (Version None)
Quarter: 2011Q3

REPORT INFORMATION
  Report Type: 
  Country: None (occurrence: None)
  Receive Date: 20110726
  Receipt Date: 20110718
  Transmission Date: 20111222
  Serious: Yes (Other)
  Sender: FDA-Public Use
  Company Number: BR-SANOFI-AVENTIS-2011SA046915

PATIENT
  Sex: Male
  Weight: 115 kg

DRUGS (5)
  1. HUMALOG [Concomitant]
     Indication: TYPE 2 DIABETES MELLITUS
     Route: 058
  2. AMLODIPINE BESYLATE [Concomitant]
     Route: 048
  3. BEZAFIBRATE [Concomitant]
     Route: 048
  4. LANTUS [Suspect]
     Indication: TYPE 2 DIABETES MELLITUS
     Route: 058
  5. ATORVASTATIN [Concomitant]
     Route: 048

REACTIONS (4)
  - HYPOGLYCAEMIA [None]
  - WEIGHT INCREASED [None]
  - BLOOD CREATINE INCREASED [None]
  - HYPERGLYCAEMIA [None]
